FAERS Safety Report 23157019 (Version 2)
Quarter: 2023Q4

REPORT INFORMATION
  Report Type: Spontaneous
  Country: US (occurrence: None)
  Receive Date: 20231108
  Receipt Date: 20231117
  Transmission Date: 20240110
  Serious: Yes (Other)
  Sender: FDA-Public Use
  Company Number: US-ROCHE-3450872

PATIENT
  Age: 45 Year
  Sex: Female
  Weight: 78.542 kg

DRUGS (6)
  1. OCREVUS [Suspect]
     Active Substance: OCRELIZUMAB
     Indication: Relapsing-remitting multiple sclerosis
     Route: 042
     Dates: start: 202102
  2. MIDODRINE [Concomitant]
     Active Substance: MIDODRINE
     Route: 048
  3. TRAZODONE [Concomitant]
     Active Substance: TRAZODONE HYDROCHLORIDE
     Route: 048
  4. MELATONIN [Concomitant]
     Active Substance: MELATONIN
     Route: 048
  5. DALFAMPRIDINE [Concomitant]
     Active Substance: DALFAMPRIDINE
  6. ALBUTEROL [Concomitant]
     Active Substance: ALBUTEROL

REACTIONS (9)
  - Staphylococcal infection [Recovered/Resolved]
  - Suspected COVID-19 [Not Recovered/Not Resolved]
  - Nasopharyngitis [Recovered/Resolved]
  - Dermatitis infected [Recovering/Resolving]
  - Eye infection [Recovered/Resolved]
  - Immunodeficiency [Not Recovered/Not Resolved]
  - Vulvovaginal mycotic infection [Recovered/Resolved]
  - Giardiasis [Recovered/Resolved]
  - H1N1 influenza [Recovering/Resolving]

NARRATIVE: CASE EVENT DATE: 20230901
